FAERS Safety Report 4463385-6 (Version None)
Quarter: 2004Q3

REPORT INFORMATION
  Report Type: 
  Country: None (occurrence: None)
  Receive Date: 20040928
  Receipt Date: 20040914
  Transmission Date: 20050211
  Serious: Yes (Hospitalization)
  Sender: FDA-Public Use
  Company Number: A0524448A

PATIENT
  Age: 36 Year
  Sex: Female

DRUGS (1)
  1. NICODERM CQ [Suspect]
     Indication: EX-SMOKER
     Dosage: 21 MG/ PER DAY / TRANSDERMAL
     Route: 062
     Dates: start: 20040825, end: 20040902

REACTIONS (1)
  - ANGINA PECTORIS [None]
